FAERS Safety Report 9514778 (Version 1)
Quarter: 2013Q3

REPORT INFORMATION
  Report Type: Spontaneous
  Country: US (occurrence: None)
  Receive Date: 20130819
  Receipt Date: 20130819
  Transmission Date: 20140515
  Serious: Yes (Hospitalization, Other)
  Sender: FDA-Public Use
  Company Number: 2013PROUSA03054

PATIENT
  Age: 68 Year
  Sex: Male
  Weight: 68.9 kg

DRUGS (3)
  1. PROVENGE (SIPULEUCEL-T) SUSPENSION [Suspect]
     Indication: PROSTATE CANCER METASTATIC
     Route: 042
     Dates: start: 20130725, end: 20130725
  2. BICALUTAMIDE (BICALUTAMIDE) [Concomitant]
  3. OXYCODONE AND ACETAMINOPHEN (OXYCODONE HYDROCHLORIDE, PARACETAMOL) 5-325 MG [Concomitant]

REACTIONS (2)
  - Gait disturbance [None]
  - Peroneal nerve palsy [None]
